FAERS Safety Report 16418483 (Version 1)
Quarter: 2019Q2

REPORT INFORMATION
  Report Type: Report from Study
  Country: None (occurrence: ES)
  Receive Date: 20190612
  Receipt Date: 20190612
  Transmission Date: 20190711
  Serious: Yes (Other)
  Sender: FDA-Public Use
  Company Number: ES-ABBVIE-19S-144-2805604-00

PATIENT
  Age: 79 Year
  Sex: Female
  Weight: 58 kg

DRUGS (2)
  1. DUODOPA [Suspect]
     Active Substance: CARBIDOPA\LEVODOPA
     Route: 050
     Dates: start: 201906
  2. DUODOPA [Suspect]
     Active Substance: CARBIDOPA\LEVODOPA
     Indication: PARKINSON^S DISEASE
     Route: 050
     Dates: start: 20190529, end: 20190531

REACTIONS (8)
  - Vomiting [Recovered/Resolved]
  - C-reactive protein increased [Unknown]
  - Vomiting [Not Recovered/Not Resolved]
  - White blood cell count increased [Unknown]
  - Peritonitis [Recovering/Resolving]
  - Pain [Not Recovered/Not Resolved]
  - Pneumoperitoneum [Unknown]
  - Ascites [Unknown]

NARRATIVE: CASE EVENT DATE: 201905
